FAERS Safety Report 9415470 (Version 3)
Quarter: 2013Q3

REPORT INFORMATION
  Report Type: Spontaneous
  Country: CA (occurrence: US)
  Receive Date: 20130723
  Receipt Date: 20130925
  Transmission Date: 20140515
  Serious: Yes (Death, Life-Threatening, Hospitalization, Other)
  Sender: FDA-Public Use
  Company Number: CA-CELGENEUS-028-21880-13071833

PATIENT
  Age: 76 Year
  Sex: Male
  Weight: 101 kg

DRUGS (31)
  1. REVLIMID [Suspect]
     Indication: PLASMA CELL MYELOMA
     Dosage: 25 MILLIGRAM
     Route: 048
     Dates: start: 20130430, end: 20130706
  2. DEXAMETHASONE [Suspect]
     Indication: PLASMA CELL MYELOMA
     Route: 048
     Dates: start: 20130430, end: 20130702
  3. MLN9708 [Suspect]
     Indication: PLASMA CELL MYELOMA
     Route: 048
     Dates: start: 20130430, end: 20130702
  4. METOPROLOL [Concomitant]
     Indication: HYPERTENSION
     Dosage: 150 MILLIGRAM
     Route: 048
     Dates: start: 1997
  5. PANTOPRAZOLE [Concomitant]
     Indication: DYSPEPSIA
     Dosage: 40 MILLIGRAM
     Route: 048
     Dates: start: 201210
  6. CANDESARTAN PLUS [Concomitant]
     Indication: HYPERTENSION
     Dosage: 16/12.5 MG
     Route: 048
     Dates: start: 1997
  7. SIMVASTATIN [Concomitant]
     Indication: HYPERLIPIDAEMIA
     Dosage: 40 MILLIGRAM
     Route: 048
     Dates: start: 1997
  8. TAMSULOSIN HCL SR [Concomitant]
     Indication: URINARY RETENTION
     Route: 048
     Dates: start: 201302
  9. OXYCODONE/ACETAMINOPHEN [Concomitant]
     Indication: PAIN
     Dosage: 5/325 MG
     Route: 048
     Dates: start: 201302
  10. IODINE/POTASSIUM IODINE [Concomitant]
     Indication: SUPPLEMENTATION THERAPY
     Dosage: 5/325 MG
     Route: 048
     Dates: start: 201203
  11. THYROID [Concomitant]
     Indication: SUPPLEMENTATION THERAPY
     Dosage: 60 MILLIGRAM
     Route: 048
     Dates: start: 201203
  12. 20% TESTOSTERONE [Concomitant]
     Indication: SUPPLEMENTATION THERAPY
     Dosage: 90 MILLIGRAM
     Route: 048
     Dates: start: 201303
  13. COMPLETE MULTIPLE VITAMIN SUPPLEMENT [Concomitant]
     Indication: PROPHYLAXIS
     Dosage: 90 MILLIGRAM
     Route: 048
     Dates: start: 2010
  14. COMPLETE MULTIPLE VITAMIN SUPPLEMENT [Concomitant]
     Indication: SUPPLEMENTATION THERAPY
  15. SUPER B-%0 COMPOUND [Concomitant]
     Indication: PROPHYLAXIS
     Route: 048
     Dates: start: 2010
  16. SUPER B-%0 COMPOUND [Concomitant]
     Indication: SUPPLEMENTATION THERAPY
  17. VITAMIN C [Concomitant]
     Indication: PROPHYLAXIS
     Dosage: 1000 MILLIGRAM
     Route: 048
     Dates: start: 2010, end: 20130430
  18. VITAMIN C [Concomitant]
     Indication: SUPPLEMENTATION THERAPY
  19. VITAMIN D3 [Concomitant]
     Indication: PROPHYLAXIS
     Dosage: 1000 MILLIGRAM
     Route: 048
     Dates: start: 2010
  20. VITAMIN D3 [Concomitant]
     Indication: SUPPLEMENTATION THERAPY
  21. ZINC [Concomitant]
     Indication: PROPHYLAXIS
     Dosage: 15 MILLIGRAM
     Route: 048
     Dates: start: 2010
  22. ZINC [Concomitant]
     Indication: SUPPLEMENTATION THERAPY
  23. CALCIUM/MAGNESIUM [Concomitant]
     Indication: MUSCLE SPASMS
     Dosage: 410 MILLIGRAM
     Route: 048
     Dates: start: 2010, end: 20130527
  24. CALCIUM/MAGNESIUM [Concomitant]
     Indication: SUPPLEMENTATION THERAPY
     Dosage: 820 MILLIGRAM
     Route: 048
     Dates: start: 20130528
  25. ENOXAPARIN [Concomitant]
     Indication: THROMBOSIS PROPHYLAXIS
     Dosage: 500 MILLIGRAM
     Route: 058
     Dates: start: 20130430
  26. ENOXAPARIN [Concomitant]
     Indication: PROPHYLAXIS
  27. VALACYLOVIR [Concomitant]
     Indication: PROPHYLAXIS
     Dosage: 500 MILLIGRAM
     Route: 048
     Dates: start: 20130430
  28. VALACYLOVIR [Concomitant]
     Indication: HERPES ZOSTER
  29. TYLENOL-EXTRA STRENGTH [Concomitant]
     Indication: BACK PAIN
     Route: 048
     Dates: start: 20130527
  30. MORPHINE [Concomitant]
     Indication: PRODUCT USED FOR UNKNOWN INDICATION
     Route: 041
     Dates: start: 20130715, end: 20130715
  31. PLATELETS [Concomitant]
     Indication: THROMBOCYTOPENIA
     Route: 041
     Dates: start: 20130707, end: 20130707

REACTIONS (2)
  - Cardiac arrest [Fatal]
  - Streptococcal sepsis [Recovered/Resolved]
